FAERS Safety Report 25918369 (Version 2)
Quarter: 2025Q4

REPORT INFORMATION
  Report Type: Spontaneous
  Country: IN (occurrence: IN)
  Receive Date: 20251014
  Receipt Date: 20251201
  Transmission Date: 20260117
  Serious: No
  Sender: MYLAN
  Company Number: IN-MYLANLABS-2025M1086939

PATIENT
  Age: 20 Year
  Sex: Female
  Weight: 35 kg

DRUGS (36)
  1. TACROLIMUS [Suspect]
     Active Substance: TACROLIMUS
     Indication: Lupus nephritis
     Dosage: 0.5 MILLIGRAM, BID
  2. TACROLIMUS [Suspect]
     Active Substance: TACROLIMUS
     Dosage: 0.5 MILLIGRAM, BID
     Route: 065
  3. TACROLIMUS [Suspect]
     Active Substance: TACROLIMUS
     Dosage: 0.5 MILLIGRAM, BID
     Route: 065
  4. TACROLIMUS [Suspect]
     Active Substance: TACROLIMUS
     Dosage: 0.5 MILLIGRAM, BID
  5. PREDNISOLONE [Concomitant]
     Active Substance: PREDNISOLONE
     Indication: Systemic scleroderma
     Dosage: 10 MILLIGRAM, QD
  6. PREDNISOLONE [Concomitant]
     Active Substance: PREDNISOLONE
     Dosage: 10 MILLIGRAM, QD
  7. PREDNISOLONE [Concomitant]
     Active Substance: PREDNISOLONE
     Dosage: 10 MILLIGRAM, QD
     Route: 048
  8. PREDNISOLONE [Concomitant]
     Active Substance: PREDNISOLONE
     Dosage: 10 MILLIGRAM, QD
     Route: 048
  9. PREDNISOLONE [Concomitant]
     Active Substance: PREDNISOLONE
     Dosage: 12.5 MILLIGRAM, QD
  10. PREDNISOLONE [Concomitant]
     Active Substance: PREDNISOLONE
     Dosage: 12.5 MILLIGRAM, QD
  11. PREDNISOLONE [Concomitant]
     Active Substance: PREDNISOLONE
     Dosage: 12.5 MILLIGRAM, QD
     Route: 048
  12. PREDNISOLONE [Concomitant]
     Active Substance: PREDNISOLONE
     Dosage: 12.5 MILLIGRAM, QD
     Route: 048
  13. PREDNISOLONE [Concomitant]
     Active Substance: PREDNISOLONE
     Dosage: 0.5 MILLIGRAM/KILOGRAM, QD
  14. PREDNISOLONE [Concomitant]
     Active Substance: PREDNISOLONE
     Dosage: 0.5 MILLIGRAM/KILOGRAM, QD
     Route: 048
  15. PREDNISOLONE [Concomitant]
     Active Substance: PREDNISOLONE
     Dosage: 0.5 MILLIGRAM/KILOGRAM, QD
  16. PREDNISOLONE [Concomitant]
     Active Substance: PREDNISOLONE
     Dosage: 0.5 MILLIGRAM/KILOGRAM, QD
     Route: 048
  17. CYCLOPHOSPHAMIDE [Concomitant]
     Active Substance: CYCLOPHOSPHAMIDE
     Indication: Lupus nephritis
     Dosage: UNK
     Route: 065
  18. CYCLOPHOSPHAMIDE [Concomitant]
     Active Substance: CYCLOPHOSPHAMIDE
     Dosage: UNK
  19. CYCLOPHOSPHAMIDE [Concomitant]
     Active Substance: CYCLOPHOSPHAMIDE
     Dosage: UNK
  20. CYCLOPHOSPHAMIDE [Concomitant]
     Active Substance: CYCLOPHOSPHAMIDE
     Dosage: UNK
     Route: 065
  21. CYCLOPHOSPHAMIDE [Concomitant]
     Active Substance: CYCLOPHOSPHAMIDE
     Dosage: UNK, MONTHLY
     Route: 065
  22. CYCLOPHOSPHAMIDE [Concomitant]
     Active Substance: CYCLOPHOSPHAMIDE
     Dosage: UNK, MONTHLY
  23. CYCLOPHOSPHAMIDE [Concomitant]
     Active Substance: CYCLOPHOSPHAMIDE
     Dosage: UNK, MONTHLY
  24. CYCLOPHOSPHAMIDE [Concomitant]
     Active Substance: CYCLOPHOSPHAMIDE
     Dosage: UNK, MONTHLY
     Route: 065
  25. TADALAFIL [Concomitant]
     Active Substance: TADALAFIL
     Indication: Pulmonary hypertension
     Dosage: UNK
  26. TADALAFIL [Concomitant]
     Active Substance: TADALAFIL
     Dosage: UNK
     Route: 065
  27. TADALAFIL [Concomitant]
     Active Substance: TADALAFIL
     Dosage: UNK
     Route: 065
  28. TADALAFIL [Concomitant]
     Active Substance: TADALAFIL
     Dosage: UNK
  29. TELMISARTAN [Concomitant]
     Active Substance: TELMISARTAN
     Indication: Pulmonary hypertension
     Dosage: UNK
  30. TELMISARTAN [Concomitant]
     Active Substance: TELMISARTAN
     Dosage: UNK
     Route: 065
  31. TELMISARTAN [Concomitant]
     Active Substance: TELMISARTAN
     Dosage: UNK
     Route: 065
  32. TELMISARTAN [Concomitant]
     Active Substance: TELMISARTAN
     Dosage: UNK
  33. AMBRISENTAN [Concomitant]
     Active Substance: AMBRISENTAN
     Indication: Pulmonary hypertension
     Dosage: UNK
  34. AMBRISENTAN [Concomitant]
     Active Substance: AMBRISENTAN
     Dosage: UNK
     Route: 065
  35. AMBRISENTAN [Concomitant]
     Active Substance: AMBRISENTAN
     Dosage: UNK
     Route: 065
  36. AMBRISENTAN [Concomitant]
     Active Substance: AMBRISENTAN
     Dosage: UNK

REACTIONS (1)
  - Off label use [Unknown]
